FAERS Safety Report 15433775 (Version 2)
Quarter: 2018Q4

REPORT INFORMATION
  Report Type: Spontaneous
  Country: JP (occurrence: JP)
  Receive Date: 20180927
  Receipt Date: 20181012
  Transmission Date: 20190204
  Serious: Yes (Other)
  Sender: FDA-Public Use
  Company Number: JP-KYOWAKIRIN-2018AKK006946

PATIENT

DRUGS (7)
  1. ANTITHYMOCYTE IMMUNOGLOBULIN [Concomitant]
     Active Substance: THYMOCYTE IMMUNE GLOBULIN NOS
     Indication: BONE MARROW CONDITIONING REGIMEN
     Dosage: 1 MG/KG
     Route: 065
  2. METHOTREXATE. [Concomitant]
     Active Substance: METHOTREXATE
     Indication: PROPHYLAXIS AGAINST GRAFT VERSUS HOST DISEASE
     Dosage: UNK
     Route: 065
  3. FLUDARABINE [Concomitant]
     Active Substance: FLUDARABINE PHOSPHATE
     Indication: BONE MARROW CONDITIONING REGIMEN
     Dosage: TOTAL 180 MG/M2
     Route: 065
  4. POTELIGEO [Suspect]
     Active Substance: MOGAMULIZUMAB-KPKC
     Indication: ADULT T-CELL LYMPHOMA/LEUKAEMIA
     Dosage: UNK, TOTAL 8 DOSES
     Route: 041
  5. VINCRISTINE [Concomitant]
     Active Substance: VINCRISTINE
     Indication: ADULT T-CELL LYMPHOMA/LEUKAEMIA
     Dosage: UNK
     Route: 065
  6. TACROLIMUS. [Concomitant]
     Active Substance: TACROLIMUS
     Indication: PROPHYLAXIS AGAINST GRAFT VERSUS HOST DISEASE
     Dosage: UNK
     Route: 065
  7. BUSULFAN. [Concomitant]
     Active Substance: BUSULFAN
     Indication: BONE MARROW CONDITIONING REGIMEN
     Dosage: TOTAL 6.4 MG/KG
     Route: 065

REACTIONS (1)
  - Graft versus host disease [Recovered/Resolved]
